FAERS Safety Report 5689572-7 (Version None)
Quarter: 2008Q1

REPORT INFORMATION
  Report Type: 
  Country: None (occurrence: None)
  Receive Date: 20080331
  Receipt Date: 20080327
  Transmission Date: 20080703
  Serious: Yes (Hospitalization)
  Sender: FDA-Public Use
  Company Number: US-MERCK-0803USA04618

PATIENT
  Age: 10 Month
  Sex: Male

DRUGS (2)
  1. CANCIDAS [Suspect]
     Indication: CANDIDIASIS
     Route: 042
     Dates: start: 20080327
  2. [THERAPY UNSPECIFIED] [Concomitant]
     Route: 065

REACTIONS (2)
  - INJECTION SITE BRUISING [None]
  - WRONG TECHNIQUE IN DRUG USAGE PROCESS [None]
